FAERS Safety Report 8833000 (Version 1)
Quarter: 2012Q4

REPORT INFORMATION
  Report Type: 
  Country: BR (occurrence: BR)
  Receive Date: 20121010
  Receipt Date: 20121010
  Transmission Date: 20130627
  Serious: Yes (Death, Other)
  Sender: FDA-Public Use
  Company Number: BR-PFIZER INC-2012247547

PATIENT
  Age: 84 Year
  Sex: Male
  Weight: 48 kg

DRUGS (1)
  1. XALATAN [Suspect]
     Indication: GLAUCOMA
     Dosage: one drop in left eye, at night
     Route: 047

REACTIONS (1)
  - Brain neoplasm malignant [Fatal]
